FAERS Safety Report 15812707 (Version 2)
Quarter: 2019Q1

REPORT INFORMATION
  Report Type: Spontaneous
  Country: JP (occurrence: JP)
  Receive Date: 20190111
  Receipt Date: 20190121
  Transmission Date: 20190417
  Serious: Yes (Other)
  Sender: FDA-Public Use
  Company Number: JP-SAKK-2019SA006238AA

PATIENT
  Age: 79 Year
  Sex: Female

DRUGS (2)
  1. TRASTUZUMAB. [Concomitant]
     Active Substance: TRASTUZUMAB
     Indication: BREAST CANCER
     Route: 065
  2. DOCETAXEL. [Suspect]
     Active Substance: DOCETAXEL
     Indication: BREAST CANCER
     Route: 041

REACTIONS (3)
  - Pyrexia [Recovered/Resolved]
  - Disseminated tuberculosis [Recovered/Resolved]
  - Dyspnoea [Recovered/Resolved]
